FAERS Safety Report 5634980-3 (Version None)
Quarter: 2008Q1

REPORT INFORMATION
  Report Type: 
  Country: None (occurrence: None)
  Receive Date: 20080222
  Receipt Date: 20080212
  Transmission Date: 20080703
  Serious: Yes (Other)
  Sender: FDA-Public Use
  Company Number: US-ABBOTT-08P-163-0437786-00

PATIENT
  Age: 14 Year
  Sex: Female

DRUGS (4)
  1. DEPAKOTE [Suspect]
     Indication: AFFECTIVE DISORDER
     Route: 048
     Dates: start: 20071019
  2. DEPAKOTE [Suspect]
     Route: 048
     Dates: start: 20080130
  3. ESCITALOPRAM [Concomitant]
     Indication: DEPRESSION
  4. QUETIAPINE FUMARATE [Concomitant]
     Indication: PSYCHOTIC DISORDER

REACTIONS (1)
  - CONVULSION [None]
